FAERS Safety Report 15345521 (Version 1)
Quarter: 2018Q3

REPORT INFORMATION
  Report Type: Spontaneous
  Country: US (occurrence: US)
  Receive Date: 20180903
  Receipt Date: 20180903
  Transmission Date: 20181010
  Serious: Yes (Other)
  Sender: FDA-Public Use
  Company Number: US-BAXTER-2018BAX022838

PATIENT

DRUGS (5)
  1. NEXTERONE [Suspect]
     Active Substance: AMIODARONE HYDROCHLORIDE
     Indication: PRODUCT USED FOR UNKNOWN INDICATION
     Dosage: STEP 1 ? AT A RATE OF 1MG/MIN
     Route: 042
     Dates: start: 20180820
  2. MILRINONE LACTATE IN 5% DEXTROSE INJECTION [Suspect]
     Active Substance: MILRINONE LACTATE
     Indication: PRODUCT USED FOR UNKNOWN INDICATION
     Route: 065
  3. NEXTERONE [Suspect]
     Active Substance: AMIODARONE HYDROCHLORIDE
     Dosage: STEP 2 ? AT A RATE OF 1MG/MIN
     Route: 042
     Dates: start: 20180822, end: 201808
  4. DOPAMINE HYDROCHLORIDE AND DEXTROSE [Suspect]
     Active Substance: DOPAMINE HYDROCHLORIDE
     Indication: PRODUCT USED FOR UNKNOWN INDICATION
     Route: 065
  5. NEXTERONE [Suspect]
     Active Substance: AMIODARONE HYDROCHLORIDE
     Dosage: STEP 1 REPROGRAMMED ? AT A RATE OF 0.5 MG/MIN
     Route: 042
     Dates: start: 20180821, end: 20180822

REACTIONS (2)
  - Atrial fibrillation [Unknown]
  - Hypotension [Recovered/Resolved]
